FAERS Safety Report 13499449 (Version 1)
Quarter: 2017Q2

REPORT INFORMATION
  Report Type: Spontaneous
  Country: FR (occurrence: FR)
  Receive Date: 20170501
  Receipt Date: 20170501
  Transmission Date: 20170830
  Serious: Yes (Life-Threatening)
  Sender: FDA-Public Use
  Company Number: FR-B. BRAUN MEDICAL INC.-2020030

PATIENT
  Age: 36 Year
  Sex: Female
  Weight: 58 kg

DRUGS (15)
  1. CATAPRESSAN [Suspect]
     Active Substance: CLONIDINE
     Route: 042
     Dates: start: 20170111, end: 20170111
  2. XYLOCAINE [Suspect]
     Active Substance: LIDOCAINE HYDROCHLORIDE
     Route: 042
     Dates: start: 20170111, end: 20170111
  3. PARACETAMOL [Suspect]
     Active Substance: ACETAMINOPHEN
     Route: 042
     Dates: start: 20170111, end: 20170111
  4. CEFAZOLIN SODIUM. [Suspect]
     Active Substance: CEFAZOLIN SODIUM
     Route: 042
     Dates: start: 20170111, end: 20170111
  5. CISATRACURIUM. [Suspect]
     Active Substance: CISATRACURIUM
     Dates: start: 20170111, end: 20170111
  6. LACTATED RINGERS [Suspect]
     Active Substance: CALCIUM CHLORIDE\POTASSIUM CHLORIDE\SODIUM CHLORIDE\SODIUM LACTATE
     Route: 042
     Dates: start: 20170111, end: 20170111
  7. EPINEPHRINE. [Suspect]
     Active Substance: EPINEPHRINE
     Route: 042
     Dates: start: 20170111, end: 20170111
  8. SEVOFLURANE. [Suspect]
     Active Substance: SEVOFLURANE
     Route: 055
     Dates: start: 20170111, end: 20170111
  9. FENTANYL. [Suspect]
     Active Substance: FENTANYL
     Route: 062
     Dates: start: 20170111, end: 20170111
  10. KETAMINE HYDROCHLORIDE. [Suspect]
     Active Substance: KETAMINE HYDROCHLORIDE
     Route: 042
     Dates: start: 20170111, end: 20170111
  11. KETOPROFEN. [Suspect]
     Active Substance: KETOPROFEN
     Route: 042
     Dates: start: 20170111, end: 20170111
  12. PROPOFOL. [Suspect]
     Active Substance: PROPOFOL
     Dates: start: 20170111, end: 20170111
  13. DEXAMETHASONE. [Suspect]
     Active Substance: DEXAMETHASONE
     Route: 042
     Dates: start: 20170111, end: 20170111
  14. SUFENTANIL [Suspect]
     Active Substance: SUFENTANIL
     Route: 042
     Dates: start: 20170111, end: 20170111
  15. NEFOPAM [Suspect]
     Active Substance: NEFOPAM
     Route: 042
     Dates: start: 20170111, end: 20170111

REACTIONS (1)
  - Cardiac arrest [Recovering/Resolving]

NARRATIVE: CASE EVENT DATE: 20170111
